FAERS Safety Report 4715646-0 (Version None)
Quarter: 2005Q3

REPORT INFORMATION
  Report Type: 
  Country: None (occurrence: None)
  Receive Date: 20050713
  Receipt Date: 20050705
  Transmission Date: 20060218
  Serious: Yes (Hospitalization, Other)
  Sender: FDA-Public Use
  Company Number: S05-USA-02498-01

PATIENT
  Age: 64 Year
  Sex: Male
  Weight: 83.9154 kg

DRUGS (7)
  1. LEXAPRO [Suspect]
     Indication: ANXIETY
     Dosage: 30 MG QD PO
     Route: 048
     Dates: start: 20050201, end: 20050517
  2. LEXAPRO [Suspect]
     Indication: DEPRESSION
     Dosage: 30 MG QD PO
     Route: 048
     Dates: start: 20050201, end: 20050517
  3. LEXAPRO [Suspect]
     Indication: ANXIETY
     Dosage: 40 MG QD PO
     Route: 048
     Dates: start: 20050518, end: 20050601
  4. LEXAPRO [Suspect]
     Indication: DEPRESSION
     Dosage: 40 MG QD PO
     Route: 048
     Dates: start: 20050518, end: 20050601
  5. LEXAPRO [Suspect]
     Indication: ANXIETY
     Dosage: 60 MG QD PO
     Route: 048
     Dates: start: 20050601
  6. LEXAPRO [Suspect]
     Indication: DEPRESSION
     Dosage: 60 MG QD PO
     Route: 048
     Dates: start: 20050601
  7. KLONOPIN [Concomitant]

REACTIONS (13)
  - CONDITION AGGRAVATED [None]
  - DELUSION [None]
  - DEPRESSION [None]
  - GASTROOESOPHAGEAL REFLUX DISEASE [None]
  - GUN SHOT WOUND [None]
  - HEADACHE [None]
  - INTENTIONAL SELF-INJURY [None]
  - PROSTATECTOMY [None]
  - SERRATIA INFECTION [None]
  - SUICIDE ATTEMPT [None]
  - URINARY TRACT INFECTION [None]
  - VISION BLURRED [None]
  - WEIGHT DECREASED [None]
